FAERS Safety Report 4325757-X (Version None)
Quarter: 2004Q1

REPORT INFORMATION
  Report Type: 
  Country: None (occurrence: None)
  Receive Date: 20040323
  Receipt Date: 20040304
  Transmission Date: 20041129
  Serious: No
  Sender: FDA-Public Use
  Company Number: 2004SE01334

PATIENT
  Age: 55 Year
  Sex: Male
  Weight: 95 kg

DRUGS (2)
  1. SUBMICORT TURBUHALER ^ASTRAZENECA^ [Suspect]
     Indication: ASTHMA
     Dosage: 160/4.5 MCG BID
     Dates: start: 20031216
  2. SYBMICORT TURBUHALER ^ASTRAZENECA^ [Suspect]
     Indication: ASTHMA
     Dosage: 160/4.5 PRN
     Dates: start: 20031216

REACTIONS (1)
  - DIABETES MELLITUS [None]
